FAERS Safety Report 6579103-1 (Version None)
Quarter: 2010Q1

REPORT INFORMATION
  Report Type: 
  Country: None (occurrence: None)
  Receive Date: 20100203
  Receipt Date: 20100121
  Transmission Date: 20100710
  Serious: Yes (Other)
  Sender: FDA-Public Use
  Company Number: 2010AL000570

PATIENT
  Age: 58 Year
  Sex: Female

DRUGS (4)
  1. CITALOPRAM HYDROBROMIDE [Suspect]
     Indication: ANXIETY
     Dosage: 20 MG; PO
     Route: 048
     Dates: start: 20030101, end: 20051109
  2. DIGOXIN [Concomitant]
  3. WARFARIN SODIUM [Concomitant]
  4. BISOPROLOL [Concomitant]

REACTIONS (5)
  - ANXIETY [None]
  - ASCITES [None]
  - DIARRHOEA [None]
  - OEDEMA PERIPHERAL [None]
  - SWELLING FACE [None]
